FAERS Safety Report 17218472 (Version 1)
Quarter: 2019Q4

REPORT INFORMATION
  Report Type: Spontaneous
  Country: RU (occurrence: RU)
  Receive Date: 20191231
  Receipt Date: 20191231
  Transmission Date: 20200122
  Serious: Yes (Other)
  Sender: FDA-Public Use
  Company Number: RU-STRIDES ARCOLAB LIMITED-2019SP013275

PATIENT
  Age: 65 Year
  Sex: Female

DRUGS (3)
  1. AMANTADINE HYDROCHLORIDE. [Suspect]
     Active Substance: AMANTADINE HYDROCHLORIDE
     Indication: PARKINSON^S DISEASE
     Dosage: 300 MILLIGRAM
     Route: 065
     Dates: end: 2015
  2. AMANTADINE HYDROCHLORIDE. [Suspect]
     Active Substance: AMANTADINE HYDROCHLORIDE
     Dosage: 300 MILLIGRAM (REINTRODUCED)
     Route: 065
     Dates: start: 2016
  3. PRAMIPEXOLE DIHYDROCHLORIDE. [Suspect]
     Active Substance: PRAMIPEXOLE DIHYDROCHLORIDE
     Indication: PARKINSON^S DISEASE
     Dosage: 3 MILLIGRAM, (SLOW RELEASE)
     Route: 065
     Dates: end: 2016

REACTIONS (7)
  - Impulse-control disorder [Recovered/Resolved]
  - Obesity [Unknown]
  - Tremor [Not Recovered/Not Resolved]
  - Weight increased [Unknown]
  - Bradykinesia [Unknown]
  - Drug withdrawal syndrome [Unknown]
  - Binge eating [Unknown]

NARRATIVE: CASE EVENT DATE: 2015
